FAERS Safety Report 5163740-5 (Version None)
Quarter: 2006Q4

REPORT INFORMATION
  Report Type: 
  Country: None (occurrence: None)
  Receive Date: 20061127
  Receipt Date: 20061127
  Transmission Date: 20070319
  Serious: Yes (Other)
  Sender: FDA-Public Use
  Company Number: None

PATIENT
  Sex: Female
  Weight: 72.5755 kg

DRUGS (1)
  1. FLUOCINONIDE OINTMENT 0.05% TARO [Suspect]
     Indication: ERYTHEMA NODOSUM
     Dosage: THIN TOPICAL FILM 2 X DAILY TOP
     Route: 061
     Dates: start: 20061122, end: 20061125

REACTIONS (2)
  - PRURITUS GENERALISED [None]
  - RASH [None]
